FAERS Safety Report 24429578 (Version 1)
Quarter: 2024Q4

REPORT INFORMATION
  Report Type: Spontaneous
  Country: US (occurrence: US)
  Receive Date: 20241012
  Receipt Date: 20241012
  Transmission Date: 20250115
  Serious: Yes (Death)
  Sender: AMGEN
  Company Number: US-AMGEN-USASP2024200853

PATIENT

DRUGS (4)
  1. BEVACIZUMAB [Suspect]
     Active Substance: BEVACIZUMAB
     Indication: Hereditary leiomyomatosis renal cell carcinoma
     Dosage: UNK
     Route: 065
  2. BEVACIZUMAB [Suspect]
     Active Substance: BEVACIZUMAB
     Indication: Metastatic renal cell carcinoma
  3. ERLOTINIB [Concomitant]
     Active Substance: ERLOTINIB
     Indication: Hereditary leiomyomatosis renal cell carcinoma
     Route: 065
  4. ERLOTINIB [Concomitant]
     Active Substance: ERLOTINIB
     Indication: Metastatic renal cell carcinoma

REACTIONS (1)
  - Death [Fatal]
